FAERS Safety Report 13505403 (Version 1)
Quarter: 2017Q2

REPORT INFORMATION
  Report Type: Spontaneous
  Country: CN (occurrence: CN)
  Receive Date: 20170502
  Receipt Date: 20170502
  Transmission Date: 20170830
  Serious: Yes (Hospitalization)
  Sender: FDA-Public Use
  Company Number: CN-ASTRAZENECA-2017SE45273

PATIENT
  Sex: Female
  Weight: 55 kg

DRUGS (1)
  1. ROSUVASTATIN CALCIUM. [Suspect]
     Active Substance: ROSUVASTATIN CALCIUM
     Indication: ATRIAL FIBRILLATION
     Route: 048
     Dates: start: 20160918, end: 20161014

REACTIONS (1)
  - Liver injury [Unknown]
